FAERS Safety Report 8560190-6 (Version None)
Quarter: 2012Q3

REPORT INFORMATION
  Report Type: 
  Country: None (occurrence: None)
  Receive Date: 20120802
  Receipt Date: 20120725
  Transmission Date: 20120928
  Serious: No
  Sender: FDA-Public Use
  Company Number: US-B.I. PHARMACEUTICALS,INC./RIDGEFIELD-2012-BP-14523BP

PATIENT
  Sex: Female
  Weight: 61 kg

DRUGS (4)
  1. SPIRIVA [Suspect]
     Indication: TOBACCO USER
  2. SYMBICORT [Concomitant]
     Indication: CHRONIC OBSTRUCTIVE PULMONARY DISEASE
     Route: 055
     Dates: start: 20050101
  3. SYMBICORT [Concomitant]
     Indication: TOBACCO USER
  4. SPIRIVA [Suspect]
     Indication: CHRONIC OBSTRUCTIVE PULMONARY DISEASE
     Dosage: 18 MCG
     Route: 055
     Dates: start: 20050101

REACTIONS (1)
  - DYSPNOEA [None]
